FAERS Safety Report 5628196-4 (Version None)
Quarter: 2008Q1

REPORT INFORMATION
  Report Type: 
  Country: None (occurrence: None)
  Receive Date: 20080215
  Receipt Date: 20080207
  Transmission Date: 20080703
  Serious: Yes (Death, Hospitalization, Other)
  Sender: FDA-Public Use
  Company Number: US-ELI_LILLY_AND_COMPANY-US200801000578

PATIENT
  Age: 63 Year
  Sex: Female
  Weight: 131.7 kg

DRUGS (8)
  1. ALIMTA [Suspect]
     Indication: NON-SMALL CELL LUNG CANCER STAGE IV
     Dosage: 500 MG, UNK
     Dates: start: 20071210, end: 20071210
  2. CARBOPLATIN [Concomitant]
     Indication: NON-SMALL CELL LUNG CANCER STAGE IV
     Dosage: 250 MG, UNK
     Dates: start: 20070904, end: 20071203
  3. VITAMIN B-12 [Concomitant]
     Dosage: 1000 UG, UNK
     Dates: start: 20071210
  4. FOLIC ACID [Concomitant]
     Dates: start: 20071207
  5. LEVAQUIN [Concomitant]
     Route: 042
     Dates: start: 20071221, end: 20071224
  6. VANCOMYCIN HYDROCHLORIDE [Concomitant]
     Route: 042
     Dates: start: 20071221, end: 20071224
  7. CEFTRIAXONE [Concomitant]
     Route: 042
     Dates: start: 20071221, end: 20071224
  8. FLUCONAZOLE [Concomitant]
     Route: 042
     Dates: start: 20071221

REACTIONS (9)
  - ANAEMIA [None]
  - BRONCHITIS [None]
  - EPISTAXIS [None]
  - MALIGNANT NEOPLASM PROGRESSION [None]
  - PETECHIAE [None]
  - RASH ERYTHEMATOUS [None]
  - RENAL FAILURE [None]
  - STOMATITIS [None]
  - THROMBOCYTOPENIA [None]
